FAERS Safety Report 14618464 (Version 1)
Quarter: 2018Q1

REPORT INFORMATION
  Report Type: Spontaneous
  Country: DE (occurrence: DE)
  Receive Date: 20180309
  Receipt Date: 20180309
  Transmission Date: 20180509
  Serious: Yes (Other)
  Sender: FDA-Public Use
  Company Number: DE-PERRIGO-18DE002175

PATIENT
  Age: 41 Year
  Sex: Male

DRUGS (2)
  1. ANXIO (UNSPECIFIED INGREDIENT) [Suspect]
     Active Substance: UNSPECIFIED INGREDIENT
  2. IBUPROFEN. [Suspect]
     Active Substance: IBUPROFEN
     Indication: BACK PAIN
     Dosage: UP TO 2400 MG,QD
     Route: 048

REACTIONS (1)
  - Acute hepatic failure [Recovered/Resolved]
